FAERS Safety Report 8127892-7 (Version None)
Quarter: 2012Q1

REPORT INFORMATION
  Report Type: 
  Country: None (occurrence: None)
  Receive Date: 20120210
  Receipt Date: 20120208
  Transmission Date: 20120608
  Serious: Yes (Death, Life-Threatening, Hospitalization, Other)
  Sender: FDA-Public Use
  Company Number: JP-ABBOTT-12P-087-0892299-00

PATIENT
  Sex: Female
  Weight: 45 kg

DRUGS (5)
  1. TERIPARATIDE [Concomitant]
     Indication: OSTEOPOROSIS
     Route: 058
     Dates: start: 20101228
  2. METHOTREXATE [Concomitant]
     Indication: RHEUMATOID ARTHRITIS
     Route: 048
     Dates: end: 20111227
  3. HUMIRA [Suspect]
     Indication: RHEUMATOID ARTHRITIS
     Route: 058
     Dates: start: 20110719, end: 20111227
  4. FOLIC ACID [Concomitant]
     Indication: RHEUMATOID ARTHRITIS
     Dosage: 5 MG/WEEK
     Route: 048
     Dates: end: 20111227
  5. PREDNISOLONE [Concomitant]
     Indication: RHEUMATOID ARTHRITIS
     Route: 048

REACTIONS (9)
  - NASOPHARYNGITIS [None]
  - IMMUNOSUPPRESSION [None]
  - LUNG INFILTRATION [None]
  - ASTHENIA [None]
  - PYREXIA [None]
  - PNEUMOCYSTIS JIROVECI PNEUMONIA [None]
  - MALAISE [None]
  - RHEUMATOID LUNG [None]
  - RESPIRATORY DISTRESS [None]
